FAERS Safety Report 5789298-5 (Version None)
Quarter: 2008Q2

REPORT INFORMATION
  Report Type: 
  Country: None (occurrence: None)
  Receive Date: 20080626
  Receipt Date: 20080611
  Transmission Date: 20081010
  Serious: Yes (Hospitalization, Other)
  Sender: FDA-Public Use
  Company Number: US-BAYER-200716669NA

PATIENT
  Age: 28 Year
  Sex: Female
  Weight: 121 kg

DRUGS (8)
  1. BETASERON [Suspect]
     Indication: RELAPSING-REMITTING MULTIPLE SCLEROSIS
     Dosage: TOTAL DAILY DOSE: 8 MIU
     Route: 058
     Dates: start: 19991029, end: 20040101
  2. BETASERON [Suspect]
     Dosage: TOTAL DAILY DOSE: 8 MIU
     Route: 058
     Dates: start: 20070101
  3. NEURONTIN [Concomitant]
     Indication: MUSCLE SPASMS
  4. BACLOFEN [Concomitant]
  5. FLUOXETINE [Concomitant]
  6. DARVOCET [Concomitant]
  7. TYLENOL [Concomitant]
     Route: 048
  8. NEURONTIN [Concomitant]
     Route: 048

REACTIONS (13)
  - COUGH [None]
  - DEPRESSION [None]
  - DYSPNOEA [None]
  - HAEMOPTYSIS [None]
  - HYPOAESTHESIA [None]
  - MOTOR DYSFUNCTION [None]
  - MULTIPLE SCLEROSIS [None]
  - MUSCLE CONTRACTURE [None]
  - MUSCLE SPASMS [None]
  - NEUROPATHY PERIPHERAL [None]
  - PAIN IN EXTREMITY [None]
  - PULMONARY EMBOLISM [None]
  - THROMBOSIS [None]
